FAERS Safety Report 7444574-5 (Version None)
Quarter: 2011Q2

REPORT INFORMATION
  Report Type: 
  Country: None (occurrence: None)
  Receive Date: 20110429
  Receipt Date: 20110422
  Transmission Date: 20111010
  Serious: Yes (Hospitalization)
  Sender: FDA-Public Use
  Company Number: IT-PFIZER INC-2011089188

PATIENT
  Age: 65 Year
  Sex: Female

DRUGS (6)
  1. FLUOROURACIL [Suspect]
     Indication: BREAST CANCER FEMALE
     Dosage: 1 G, CYCLIC
     Route: 042
     Dates: start: 20101118, end: 20110120
  2. NEULASTA [Concomitant]
     Indication: SUPPORTIVE CARE
     Dosage: 1 DF, CYCLIC
     Route: 058
     Dates: start: 20101118, end: 20110121
  3. KYTRIL [Concomitant]
     Indication: ANTIEMETIC SUPPORTIVE CARE
     Dosage: 1 MG, CYCLIC
     Route: 042
     Dates: start: 20101118, end: 20110211
  4. FARMORUBICINA [Suspect]
     Indication: BREAST CANCER FEMALE
     Dosage: 1 G, CYCLIC
     Route: 042
     Dates: start: 20101118, end: 20110120
  5. DEXAMETHASONE PHOSPHATE [Concomitant]
     Indication: ANTIEMETIC SUPPORTIVE CARE
     Dosage: 8 MG, CYCLIC
     Route: 042
     Dates: start: 20101118, end: 20110211
  6. CYCLOPHOSPHAMIDE [Suspect]
     Indication: BREAST CANCER FEMALE
     Dosage: 1 G, CYCLIC
     Route: 042
     Dates: start: 20101118, end: 20110120

REACTIONS (3)
  - FEBRILE NEUTROPENIA [None]
  - COUGH [None]
  - DYSPNOEA AT REST [None]
